FAERS Safety Report 13598431 (Version 23)
Quarter: 2018Q2

REPORT INFORMATION
  Report Type: Spontaneous
  Country: CA (occurrence: CA)
  Receive Date: 20170531
  Receipt Date: 20180615
  Transmission Date: 20180711
  Serious: Yes (Hospitalization, Other)
  Sender: FDA-Public Use
  Company Number: CA-CELLTRION INC.-2017CA004478

PATIENT

DRUGS (12)
  1. PREDNISONE. [Concomitant]
     Active Substance: PREDNISONE
     Indication: PAIN
     Dosage: 35-50 MG, DAILY
     Route: 048
     Dates: start: 20170505
  2. INFLECTRA [Suspect]
     Active Substance: INFLIXIMAB-DYYB
     Dosage: 1000 MG, CYCLIC (EVERY 4 WEEKS)
     Route: 042
     Dates: start: 20180410
  3. CYMBALTA [Concomitant]
     Active Substance: DULOXETINE HYDROCHLORIDE
     Dosage: 90 MG, UNK
     Route: 065
     Dates: start: 2012
  4. CANNABIS SATIVA [Concomitant]
     Active Substance: CANNABIS SATIVA SUBSP. SATIVA FLOWERING TOP
     Dosage: UNK
  5. INFLECTRA [Suspect]
     Active Substance: INFLIXIMAB-DYYB
     Dosage: EVERY 4 WEEKS FOR 12 MONTHS
     Route: 042
  6. INFLECTRA [Suspect]
     Active Substance: INFLIXIMAB-DYYB
     Dosage: 500 MG, CYCLIC (EVERY 4 WEEKS)
     Route: 042
  7. INFLECTRA [Suspect]
     Active Substance: INFLIXIMAB-DYYB
     Dosage: 1000 MG, CYCLIC (EVERY 4 WEEKS)
     Route: 042
     Dates: start: 20180605
  8. INFLECTRA [Suspect]
     Active Substance: INFLIXIMAB-DYYB
     Dosage: 500 MG, CYCLIC, EVERY 4 WEEKS
     Route: 042
  9. INFLECTRA [Suspect]
     Active Substance: INFLIXIMAB-DYYB
     Dosage: 1000 MG, CYCLIC (EVERY 4 WEEKS)
     Route: 042
     Dates: start: 20180508
  10. PREDNISONE. [Concomitant]
     Active Substance: PREDNISONE
     Dosage: 40 MG, DAILY
     Route: 048
     Dates: start: 20170515
  11. INFLECTRA [Suspect]
     Active Substance: INFLIXIMAB-DYYB
     Indication: PSORIATIC ARTHROPATHY
     Dosage: 500 MG, CYCLIC,EVERY 2, 6 WEEKS THEN EVERY 8 WEEKS FOR 12 MONTHS)
     Route: 042
     Dates: start: 20160707
  12. INFLECTRA [Suspect]
     Active Substance: INFLIXIMAB-DYYB
     Dosage: 1000 MG, CYCLIC, EVERY 4 WEEKS
     Route: 042
     Dates: start: 20180313

REACTIONS (28)
  - Dysuria [Not Recovered/Not Resolved]
  - Drug effect incomplete [Unknown]
  - Chest discomfort [Recovered/Resolved]
  - Arthralgia [Not Recovered/Not Resolved]
  - Fatigue [Unknown]
  - Nausea [Not Recovered/Not Resolved]
  - Pneumonia [Unknown]
  - Vitamin B12 decreased [Not Recovered/Not Resolved]
  - Dysphonia [Unknown]
  - Cough [Not Recovered/Not Resolved]
  - Incorrect drug administration duration [Unknown]
  - Heart rate increased [Unknown]
  - Weight decreased [Unknown]
  - Vomiting [Recovering/Resolving]
  - Malaise [Unknown]
  - Diarrhoea [Not Recovered/Not Resolved]
  - Haematemesis [Unknown]
  - Menstrual disorder [Not Recovered/Not Resolved]
  - Weight increased [Unknown]
  - Blood pressure fluctuation [Unknown]
  - Migraine [Unknown]
  - Hormone level abnormal [Not Recovered/Not Resolved]
  - Blood pressure increased [Unknown]
  - Haemoglobin decreased [Unknown]
  - Pulse abnormal [Unknown]
  - Back pain [Unknown]
  - Pericarditis [Unknown]
  - Product use issue [Unknown]

NARRATIVE: CASE EVENT DATE: 20170314
